FAERS Safety Report 8137852-8 (Version None)
Quarter: 2012Q1

REPORT INFORMATION
  Report Type: 
  Country: None (occurrence: None)
  Receive Date: 20120215
  Receipt Date: 20120201
  Transmission Date: 20120608
  Serious: Yes (Other)
  Sender: FDA-Public Use
  Company Number: ES-BRISTOL-MYERS SQUIBB COMPANY-16398059

PATIENT
  Age: 50 Year
  Sex: Male

DRUGS (1)
  1. ORENCIA [Suspect]

REACTIONS (2)
  - PNEUMOCONIOSIS [None]
  - BRONCHIAL DISORDER [None]
